FAERS Safety Report 12138776 (Version 2)
Quarter: 2016Q2

REPORT INFORMATION
  Report Type: Spontaneous
  Country: US (occurrence: US)
  Receive Date: 20160302
  Receipt Date: 20160422
  Transmission Date: 20160815
  Serious: Yes (Other)
  Sender: FDA-Public Use
  Company Number: US-BAYER-2016-040920

PATIENT
  Age: 27 Year
  Sex: Female
  Weight: 53.97 kg

DRUGS (1)
  1. MIRENA [Suspect]
     Active Substance: LEVONORGESTREL
     Indication: MENORRHAGIA
     Dosage: 20 MCG/24HR, CONT
     Route: 015
     Dates: start: 20150710, end: 20160115

REACTIONS (3)
  - Genital haemorrhage [Recovered/Resolved]
  - Abdominal pain lower [Recovered/Resolved]
  - Uterine perforation [Recovered/Resolved]

NARRATIVE: CASE EVENT DATE: 20160115
